FAERS Safety Report 4338810-1 (Version None)
Quarter: 2004Q2

REPORT INFORMATION
  Report Type: 
  Country: None (occurrence: None)
  Receive Date: 20040409
  Receipt Date: 20040329
  Transmission Date: 20050107
  Serious: Yes (Other)
  Sender: FDA-Public Use
  Company Number: 2004014684

PATIENT
  Age: 67 Year
  Sex: Female
  Weight: 57 kg

DRUGS (13)
  1. VFEND [Suspect]
     Indication: CEREBRAL FUNGAL INFECTION
     Dosage: 400 MG (BID) , ORAL
     Route: 048
     Dates: start: 20040227, end: 20040305
  2. SULFADIAZINE [Suspect]
     Indication: CEREBRAL FUNGAL INFECTION
     Dosage: 4 GRAM (QID)
     Dates: start: 20040227, end: 20040305
  3. PYRIMETHAMINE TAB [Suspect]
     Indication: TOXOPLASMOSIS
     Dosage: ORAL
     Route: 048
     Dates: start: 20040227, end: 20040305
  4. CALCIUM FOLINATE (CALCIUM FOLINATE) [Concomitant]
  5. CYCLOSPORINE [Concomitant]
  6. MYCOPHENOLATE  MOFETIL (MYCOPHENOLATE MOFETIL) [Concomitant]
  7. PREDNISONE [Concomitant]
  8. VALACYCLOVIR HCL [Concomitant]
  9. ACETYLSALICYLIC ACID SRT [Concomitant]
  10. FLUVASTATIN (FLUVASTATIN) [Concomitant]
  11. BISOPROLOL FUMARATE [Concomitant]
  12. FORMOTEROL FUMARATE (FORMOTEROL FUMARATE) [Concomitant]
  13. OMEPRAZOLE [Concomitant]

REACTIONS (5)
  - CONDITION AGGRAVATED [None]
  - FUNGAL INFECTION [None]
  - NEPHROLITHIASIS [None]
  - RENAL FAILURE [None]
  - TOXOPLASMOSIS [None]
